FAERS Safety Report 7363090-2 (Version None)
Quarter: 2011Q1

REPORT INFORMATION
  Report Type: 
  Country: None (occurrence: None)
  Receive Date: 20110321
  Receipt Date: 20110316
  Transmission Date: 20110831
  Serious: No
  Sender: FDA-Public Use
  Company Number: US-PFIZER INC-2011058340

PATIENT
  Sex: Male

DRUGS (1)
  1. SUTENT [Suspect]
     Indication: RENAL CANCER
     Dosage: 50 MG, DAILY
     Route: 048
     Dates: start: 20110223, end: 20110310

REACTIONS (3)
  - PYREXIA [None]
  - WHITE BLOOD CELL COUNT DECREASED [None]
  - HERPES VIRUS INFECTION [None]
